FAERS Safety Report 4870967-6 (Version None)
Quarter: 2005Q4

REPORT INFORMATION
  Report Type: 
  Country: None (occurrence: None)
  Receive Date: 20051229
  Receipt Date: 20051214
  Transmission Date: 20060501
  Serious: Yes (Other)
  Sender: FDA-Public Use
  Company Number: FR200512002431

PATIENT
  Age: 82 Year
  Sex: Female

DRUGS (2)
  1. FORTEO [Suspect]
     Dosage: UNK, SUBCUTANEOUS
     Route: 058
     Dates: start: 20050901
  2. FORTEO [Suspect]

REACTIONS (1)
  - SCIATICA [None]
